FAERS Safety Report 7632536-4 (Version None)
Quarter: 2011Q3

REPORT INFORMATION
  Report Type: 
  Country: None (occurrence: None)
  Receive Date: 20110725
  Receipt Date: 20101203
  Transmission Date: 20111222
  Serious: No
  Sender: FDA-Public Use
  Company Number: US-BRISTOL-MYERS SQUIBB COMPANY-15318512

PATIENT
  Age: 76 Year
  Sex: Female
  Weight: 38 kg

DRUGS (4)
  1. COUMADIN [Suspect]
     Dosage: 2 DAYS ON AND 1 DAY OFF.
     Dates: start: 20100901
  2. CARDIZEM [Concomitant]
  3. FLOVENT [Concomitant]
     Dosage: INHALER
     Route: 055
  4. XOPENEX [Concomitant]

REACTIONS (1)
  - INTERNATIONAL NORMALISED RATIO FLUCTUATION [None]
